FAERS Safety Report 8933473 (Version 1)
Quarter: 2012Q4

REPORT INFORMATION
  Report Type: 
  Country: IT (occurrence: IT)
  Receive Date: 20121128
  Receipt Date: 20121128
  Transmission Date: 20130627
  Serious: Yes (Hospitalization)
  Sender: FDA-Public Use
  Company Number: IT-MYLANLABS-2012S1023881

PATIENT
  Age: 86 Year
  Sex: Male

DRUGS (2)
  1. LEVOCARNITINE [Suspect]
     Dosage: 1 g/d
     Route: 030
  2. WARFARIN [Interacting]
     Indication: DEEP VEIN THROMBOSIS
     Route: 048
     Dates: start: 201010

REACTIONS (4)
  - Drug interaction [Recovering/Resolving]
  - Anaemia [Recovering/Resolving]
  - Coagulopathy [Recovering/Resolving]
  - Injection site swelling [Recovering/Resolving]
